FAERS Safety Report 9891196 (Version 2)
Quarter: 2014Q3

REPORT INFORMATION
  Report Type: Spontaneous
  Country: US (occurrence: US)
  Receive Date: 20140212
  Receipt Date: 20140813
  Transmission Date: 20150326
  Serious: Yes (Hospitalization, Other)
  Sender: FDA-Public Use
  Company Number: US-009507513-1402USA005017

PATIENT
  Sex: Female
  Weight: 66.21 kg

DRUGS (1)
  1. NUVARING [Suspect]
     Active Substance: ETHINYL ESTRADIOL\ETONOGESTREL
     Dosage: UNK
     Route: 067
     Dates: start: 20060705, end: 20061121

REACTIONS (9)
  - Pulmonary embolism [Unknown]
  - Pharyngitis [Unknown]
  - Pulmonary infarction [Unknown]
  - Tendonitis [Unknown]
  - Lung consolidation [Unknown]
  - Pulmonary embolism [Unknown]
  - Fatigue [Unknown]
  - Tendon operation [Unknown]
  - Lymphadenopathy [Unknown]

NARRATIVE: CASE EVENT DATE: 200611
